FAERS Safety Report 5732872-2 (Version None)
Quarter: 2008Q2

REPORT INFORMATION
  Report Type: 
  Country: None (occurrence: None)
  Receive Date: 20080509
  Receipt Date: 20080124
  Transmission Date: 20081010
  Serious: No
  Sender: FDA-Public Use
  Company Number: A0705173A

PATIENT
  Age: 63 Year
  Sex: Female

DRUGS (8)
  1. COREG CR [Suspect]
     Dosage: 40MG PER DAY
     Route: 048
     Dates: start: 20070930
  2. SYNTHROID [Concomitant]
  3. METOLAZONE [Concomitant]
  4. LASIX [Concomitant]
  5. PREMARIN [Concomitant]
  6. VYTORIN [Concomitant]
  7. ENALAPRIL MALEATE [Concomitant]
  8. POTASSIUM CHLORIDE [Concomitant]

REACTIONS (1)
  - RHINORRHOEA [None]
